FAERS Safety Report 9507255 (Version 2)
Quarter: 2013Q3

REPORT INFORMATION
  Report Type: Report from Study
  Country: CA (occurrence: CA)
  Receive Date: 20130909
  Receipt Date: 20130909
  Transmission Date: 20140515
  Serious: Yes (Hospitalization, Other)
  Sender: FDA-Public Use
  Company Number: PHHO2012CA006184

PATIENT
  Age: 67 Year
  Sex: Male
  Weight: 94.4 kg

DRUGS (11)
  1. ALISKIREN [Suspect]
     Indication: CARDIOVASCULAR DISORDER
     Dosage: 300 MG, UNK
     Dates: start: 20110801, end: 20120216
  2. AMLODIPINE [Concomitant]
     Dosage: 5 MG, UNK
  3. ASA [Concomitant]
  4. ATORVASTATIN [Concomitant]
  5. BIGUANIDES [Concomitant]
  6. GLICLAZIDE [Concomitant]
  7. LEVOTHYROXINE SODIUM [Concomitant]
  8. METOPROLOL [Concomitant]
  9. PERINDOPRIL [Concomitant]
     Dosage: 8 MG, UNK
  10. PIOGLITAZONE HYDROCHLORIDE [Concomitant]
  11. ACE INHIBITORS [Concomitant]

REACTIONS (2)
  - Renal failure acute [Recovered/Resolved]
  - Cellulitis staphylococcal [Recovering/Resolving]
